FAERS Safety Report 5659672-6 (Version None)
Quarter: 2008Q1

REPORT INFORMATION
  Report Type: 
  Country: None (occurrence: None)
  Receive Date: 20080311
  Receipt Date: 20080307
  Transmission Date: 20080703
  Serious: Yes (Death)
  Sender: FDA-Public Use
  Company Number: UA-ASTRAZENECA-2008SE00609

PATIENT
  Age: 1444 Day
  Sex: Female
  Weight: 13 kg

DRUGS (7)
  1. CANDESARTAN CILEXETIL [Suspect]
     Indication: HYPERTENSION
     Route: 048
     Dates: start: 20070719
  2. LEUKERAN [Concomitant]
     Indication: NEPHROTIC SYNDROME
     Route: 048
     Dates: start: 20070313
  3. LEUKERAN [Concomitant]
     Route: 048
     Dates: start: 20071204, end: 20080202
  4. PREDNISOLONE [Concomitant]
     Indication: NEPHROTIC SYNDROME
     Route: 048
     Dates: start: 20060401
  5. PREDNISOLONE [Concomitant]
     Route: 048
     Dates: start: 20071219, end: 20080202
  6. LOVASTATIN [Concomitant]
     Indication: NEPHROTIC SYNDROME
     Route: 048
     Dates: start: 20070201
  7. ACTIFFERIN [Concomitant]
     Indication: NEPHROTIC SYNDROME
     Route: 048
     Dates: start: 20070814

REACTIONS (1)
  - GLOMERULONEPHRITIS CHRONIC [None]
